FAERS Safety Report 10926087 (Version 1)
Quarter: 2015Q1

REPORT INFORMATION
  Report Type: Spontaneous
  Country: US (occurrence: US)
  Receive Date: 20150318
  Receipt Date: 20150318
  Transmission Date: 20150721
  Serious: Yes (Life-Threatening)
  Sender: FDA-Public Use
  Company Number: US-ASTRAZENECA-2015SE23361

PATIENT
  Age: 61 Year
  Sex: Male
  Weight: 93.4 kg

DRUGS (1)
  1. SYMBICORT [Suspect]
     Active Substance: BUDESONIDE\FORMOTEROL FUMARATE DIHYDRATE
     Indication: RESPIRATORY DISORDER
     Dosage: 80/4.5 MCG BID
     Route: 055
     Dates: start: 2015, end: 2015

REACTIONS (6)
  - Headache [Recovered/Resolved]
  - Malaise [Unknown]
  - Product use issue [Unknown]
  - Malaise [Recovered/Resolved]
  - Lethargy [Recovered/Resolved]
  - Influenza like illness [Recovered/Resolved]

NARRATIVE: CASE EVENT DATE: 2015
